FAERS Safety Report 11008297 (Version 2)
Quarter: 2015Q3

REPORT INFORMATION
  Report Type: Spontaneous
  Country: US (occurrence: US)
  Receive Date: 20150410
  Receipt Date: 20150831
  Transmission Date: 20151125
  Serious: Yes (Other)
  Sender: FDA-Public Use
  Company Number: US-PFIZER INC-2015089906

PATIENT
  Age: 29 Year
  Sex: Female
  Weight: 47 kg

DRUGS (17)
  1. ZESTRIL [Concomitant]
     Active Substance: LISINOPRIL
     Dosage: 20 MG, DAILY
     Route: 048
  2. PERCOCET [Concomitant]
     Active Substance: ACETAMINOPHEN\OXYCODONE HYDROCHLORIDE
     Dosage: 1 DF, AS NEEDED (OXYCODONE HYDROCHLORIDE 10, PARACETAMOL 325) (Q4H)
     Route: 048
     Dates: end: 20150310
  3. ZYVOX [Suspect]
     Active Substance: LINEZOLID
     Indication: ARTHRITIS BACTERIAL
     Dosage: 600 MG, 2X/DAY (Q12H SCH)
     Route: 048
     Dates: end: 20150309
  4. BESTROL [Concomitant]
     Dosage: UNK
  5. COLACE [Concomitant]
     Active Substance: DOCUSATE SODIUM
     Dosage: 100 MG, AS NEEDED (DAILY)
     Route: 048
  6. CATAPRES [Concomitant]
     Active Substance: CLONIDINE HYDROCHLORIDE
     Dosage: 0.1 MG, AS NEEDED (EVERY 4 HRS)
     Route: 048
     Dates: start: 20150306, end: 20150306
  7. MORPHINE [Concomitant]
     Active Substance: MORPHINE
     Dosage: 1-2 MG, AS NEEDED (EVERY 4 HRS)
     Route: 030
     Dates: end: 20150310
  8. MIRALAX [Concomitant]
     Active Substance: POLYETHYLENE GLYCOL 3350
     Dosage: 17 G, AS NEEDED (QID)
     Route: 048
     Dates: end: 20150309
  9. LOPRESSOR [Concomitant]
     Active Substance: METOPROLOL TARTRATE
     Dosage: 12.5 MG, 2X/DAY
     Route: 048
     Dates: end: 20150309
  10. APRESOLINE HYDROCHLORIDE [Concomitant]
     Active Substance: HYDRALAZINE HYDROCHLORIDE
     Dosage: 10 MG, AS NEEDED (EVERY 4 HRS)
     Route: 042
     Dates: start: 20150306, end: 20150306
  11. TYLENOL [Concomitant]
     Active Substance: ACETAMINOPHEN
     Dosage: 650 MG, AS NEEDED (EVERY 4 HRS)
     Route: 048
     Dates: end: 20150309
  12. PRINIVIL [Concomitant]
     Active Substance: LISINOPRIL
     Dosage: 20 MG, DAILY
     Route: 048
     Dates: end: 20150309
  13. NARCAN [Concomitant]
     Active Substance: NALOXONE HYDROCHLORIDE
     Dosage: 0.4 MG, AS NEEDED
     Route: 042
  14. LOVENOX [Concomitant]
     Active Substance: ENOXAPARIN SODIUM
     Dosage: 40 MG, DAILY
     Route: 058
     Dates: start: 20150306, end: 20150306
  15. ATIVAN [Concomitant]
     Active Substance: LORAZEPAM
     Dosage: 0.5 MG, AS NEEDED (Q4H)
     Route: 048
     Dates: end: 20150309
  16. ZOFRAN [Concomitant]
     Active Substance: ONDANSETRON HYDROCHLORIDE
     Dosage: 4 MG, AS NEEDED (Q6H)
     Route: 042
     Dates: end: 20150306
  17. PRILOSEC [Concomitant]
     Active Substance: OMEPRAZOLE MAGNESIUM
     Dosage: 20 MG, DAILY
     Route: 048
     Dates: end: 20150309

REACTIONS (9)
  - Thrombophlebitis superficial [Unknown]
  - Haematochezia [Unknown]
  - Deep vein thrombosis [Unknown]
  - Jugular vein thrombosis [Unknown]
  - Off label use [Unknown]
  - Pain in extremity [Recovering/Resolving]
  - Neck pain [Unknown]
  - Venous thrombosis limb [Unknown]
  - Pyrexia [Unknown]
